FAERS Safety Report 13398336 (Version 1)
Quarter: 2017Q2

REPORT INFORMATION
  Report Type: Report from Study
  Country: US (occurrence: US)
  Receive Date: 20170403
  Receipt Date: 20170403
  Transmission Date: 20170830
  Serious: Yes (Disabling, Other)
  Sender: FDA-Public Use
  Company Number: US-GILEAD-2017-0265203

PATIENT
  Age: 81 Year
  Sex: Male

DRUGS (1)
  1. RANOLAZINE. [Suspect]
     Active Substance: RANOLAZINE
     Indication: ANGINA PECTORIS
     Dosage: 1000 MG, UNK
     Route: 048
     Dates: start: 2010

REACTIONS (4)
  - Glaucoma [Unknown]
  - Optic nerve sheath haemorrhage [Unknown]
  - Blindness unilateral [Unknown]
  - Stent placement [Unknown]
